FAERS Safety Report 9880667 (Version 2)
Quarter: 2014Q1

REPORT INFORMATION
  Report Type: Spontaneous
  Country: US (occurrence: US)
  Receive Date: 20140207
  Receipt Date: 20140310
  Transmission Date: 20141002
  Serious: Yes (Death, Other)
  Sender: FDA-Public Use
  Company Number: US-SA-2014SA014630

PATIENT
  Age: 51 Year
  Sex: Female

DRUGS (22)
  1. LANTUS [Suspect]
     Indication: DIABETES MELLITUS
     Dosage: DOSE:20 UNIT(S)
     Route: 058
     Dates: start: 201105
  2. LANTUS [Suspect]
     Indication: DIABETES MELLITUS
     Dosage: DOSE:35 UNIT(S)
     Route: 058
     Dates: start: 201110
  3. METFORMIN [Concomitant]
     Indication: DIABETES MELLITUS
     Route: 065
     Dates: start: 201104
  4. AMARYL [Concomitant]
     Route: 065
     Dates: end: 201111
  5. NOVOLIN R [Concomitant]
     Route: 065
  6. ASPIRIN [Concomitant]
     Dosage: DOSE:5 GRAIN(S)
     Route: 065
  7. LISINOPRIL [Concomitant]
     Route: 065
  8. VITAMIN B12 [Concomitant]
     Route: 065
  9. POTASSIUM CHLORIDE [Concomitant]
     Route: 065
  10. CELEBREX [Concomitant]
     Route: 065
  11. CENTRUM [Concomitant]
  12. MULTIVITAMINS [Concomitant]
     Route: 065
  13. CITALOPRAM [Concomitant]
     Route: 065
  14. AMITRIPTYLINE [Concomitant]
     Route: 065
  15. HYDROCHLOROTHIAZIDE [Concomitant]
     Route: 065
  16. SYNTHROID [Concomitant]
     Route: 065
  17. FUROSEMIDE [Concomitant]
     Route: 065
  18. AMBIEN [Concomitant]
     Dosage: AT NIGHT
     Route: 065
  19. PROVENTIL INHALER [Concomitant]
  20. BUDESONIDE/FORMOTEROL [Concomitant]
  21. NYSTATIN [Concomitant]
  22. TYLENOL [Concomitant]
     Dosage: NO MORE THAN 6 TABLETS A DAY

REACTIONS (6)
  - Sepsis [Fatal]
  - Loss of consciousness [Fatal]
  - Cellulitis [Not Recovered/Not Resolved]
  - Ulcer [Not Recovered/Not Resolved]
  - Local swelling [Not Recovered/Not Resolved]
  - Blood glucose increased [Not Recovered/Not Resolved]
